FAERS Safety Report 8282148-7 (Version None)
Quarter: 2012Q2

REPORT INFORMATION
  Report Type: 
  Country: None (occurrence: None)
  Receive Date: 20120413
  Receipt Date: 20120411
  Transmission Date: 20120825
  Serious: Yes (Other)
  Sender: FDA-Public Use
  Company Number: PHEH2012US003155

PATIENT
  Sex: Female

DRUGS (12)
  1. AFINITOR [Suspect]
     Dosage: 5 MG, DAILY
     Route: 048
     Dates: start: 20120309
  2. TEGRETOL [Concomitant]
  3. FLONASE [Concomitant]
  4. ZYPREXA ZYDIS [Concomitant]
  5. AFINITOR [Suspect]
     Indication: ASTROCYTOMA, LOW GRADE
     Dosage: 5 MG, DAILY
     Route: 048
     Dates: start: 20111213
  6. OLANZAPINE [Concomitant]
  7. LISINOPRIL [Concomitant]
  8. TRILEPTAL [Concomitant]
  9. MELATONIN [Concomitant]
  10. CYMBALTA [Concomitant]
  11. AFINITOR [Suspect]
     Dosage: 7.5 MG, DAILY
     Route: 048
  12. TRANXENE [Concomitant]

REACTIONS (6)
  - CONVULSION [None]
  - GRAND MAL CONVULSION [None]
  - ABNORMAL BEHAVIOUR [None]
  - DRUG LEVEL DECREASED [None]
  - STOMATITIS [None]
  - ACNE PUSTULAR [None]
